FAERS Safety Report 6984400-1 (Version None)
Quarter: 2010Q3

REPORT INFORMATION
  Report Type: 
  Country: None (occurrence: None)
  Receive Date: 20100915
  Receipt Date: 20100907
  Transmission Date: 20110219
  Serious: Yes (Hospitalization, Other)
  Sender: FDA-Public Use
  Company Number: CHPA2010US14485

PATIENT
  Age: 75 Year
  Sex: Male

DRUGS (7)
  1. BENEFIBER W/ WHEAT DEXTRIN (NCH) [Suspect]
     Indication: CONSTIPATION
     Dosage: 6 TSP, BID
     Route: 048
     Dates: start: 20100801
  2. COUMADIN [Concomitant]
  3. AMIODARONE HCL [Concomitant]
  4. METFORMIN HCL [Concomitant]
  5. ENALAPRIL [Concomitant]
  6. FLOMAX [Concomitant]
  7. SIMVASTATIN [Concomitant]

REACTIONS (5)
  - BLOOD PRESSURE INCREASED [None]
  - DIZZINESS [None]
  - HEADACHE [None]
  - OFF LABEL USE [None]
  - OVERDOSE [None]
